FAERS Safety Report 16483716 (Version 5)
Quarter: 2019Q3

REPORT INFORMATION
  Report Type: Spontaneous
  Country: PL (occurrence: PL)
  Receive Date: 20190627
  Receipt Date: 20190902
  Transmission Date: 20191004
  Serious: Yes (Death, Hospitalization)
  Sender: FDA-Public Use
  Company Number: PL-ACTELION-A-CH2019-192048

PATIENT

DRUGS (4)
  1. BOSENTAN. [Suspect]
     Active Substance: BOSENTAN
     Indication: PULMONARY ARTERIAL HYPERTENSION
     Dosage: UNK
     Route: 048
     Dates: start: 2008
  2. SILDENAFIL. [Concomitant]
     Active Substance: SILDENAFIL
  3. FLOLAN [Suspect]
     Active Substance: EPOPROSTENOL SODIUM
     Indication: PULMONARY ARTERIAL HYPERTENSION
     Route: 042
  4. NITRIC OXIDE. [Concomitant]
     Active Substance: NITRIC OXIDE

REACTIONS (4)
  - Disease progression [Fatal]
  - Right-to-left cardiac shunt [Fatal]
  - Catheterisation cardiac [Unknown]
  - Pulmonary arterial hypertension [Fatal]
